FAERS Safety Report 15505602 (Version 1)
Quarter: 2018Q4

REPORT INFORMATION
  Report Type: Spontaneous
  Country: LB (occurrence: US)
  Receive Date: 20181016
  Receipt Date: 20181016
  Transmission Date: 20190205
  Serious: Yes (Hospitalization, Other)
  Sender: FDA-Public Use
  Company Number: LB-APOTEX-2018AP022698

PATIENT
  Age: 80 Year
  Sex: Male

DRUGS (5)
  1. ASPIRIN                            /00002701/ [Suspect]
     Active Substance: ASPIRIN
     Indication: PRODUCT USED FOR UNKNOWN INDICATION
     Dosage: UNK, UNKNOWN
     Route: 065
  2. DABIGATRAN [Interacting]
     Active Substance: DABIGATRAN
     Indication: CEREBROVASCULAR ACCIDENT
     Dosage: 75 MG, BID
     Route: 065
  3. DABIGATRAN [Interacting]
     Active Substance: DABIGATRAN
     Indication: THROMBOSIS PROPHYLAXIS
  4. DABIGATRAN [Interacting]
     Active Substance: DABIGATRAN
     Indication: ARRHYTHMIA PROPHYLAXIS
  5. OMEGA-3 ACIDS [Suspect]
     Active Substance: OMEGA-3 FATTY ACIDS
     Indication: PRODUCT USED FOR UNKNOWN INDICATION
     Dosage: UNK, UNKNOWN
     Route: 065

REACTIONS (2)
  - Urogenital haemorrhage [Recovered/Resolved]
  - Drug interaction [Unknown]
